FAERS Safety Report 7396703-X (Version None)
Quarter: 2011Q2

REPORT INFORMATION
  Report Type: 
  Country: None (occurrence: None)
  Receive Date: 20110406
  Receipt Date: 20110331
  Transmission Date: 20111010
  Serious: Yes (Life-Threatening, Hospitalization, Other)
  Sender: FDA-Public Use
  Company Number: PT-SANOFI-AVENTIS-2011SA019852

PATIENT
  Age: 71 Year
  Sex: Female
  Weight: 62 kg

DRUGS (8)
  1. LANOXIN [Concomitant]
     Route: 048
     Dates: start: 20110206
  2. CALCIUM [Concomitant]
  3. PLAVIX [Suspect]
     Route: 048
     Dates: start: 20110206, end: 20110330
  4. PERINDOPRIL [Concomitant]
     Route: 048
     Dates: start: 20110206
  5. ACETYLSALICYLIC ACID SRT [Concomitant]
     Route: 048
     Dates: start: 20110206
  6. LETTER [Concomitant]
  7. LASIX [Concomitant]
     Route: 042
     Dates: start: 20110313
  8. ATARAX [Concomitant]
     Indication: ANXIETY
     Route: 048
     Dates: start: 20110313

REACTIONS (4)
  - ABNORMAL BEHAVIOUR [None]
  - PARASOMNIA [None]
  - PLEURAL EFFUSION [None]
  - AUTOIMMUNE DISORDER [None]
